FAERS Safety Report 17180937 (Version 4)
Quarter: 2020Q2

REPORT INFORMATION
  Report Type: Spontaneous
  Country: PT (occurrence: PT)
  Receive Date: 20191219
  Receipt Date: 20200417
  Transmission Date: 20200713
  Serious: Yes (Hospitalization, Other)
  Sender: FDA-Public Use
  Company Number: NVSC2019PT013894

PATIENT
  Age: 74 Year
  Sex: Female

DRUGS (3)
  1. METAMIZOLE MAGNESIUM [Concomitant]
     Active Substance: METAMIZOLE MAGNESIUM
     Indication: ARTHRALGIA
     Dosage: 575 MG
     Route: 065
  2. PARACETAMOL [Suspect]
     Active Substance: ACETAMINOPHEN
     Indication: ARTHRALGIA
     Dosage: 1000 MG
     Route: 065
  3. ALENDRONATE SODIUM TRIHYDRATE,COLECALCIFEROL [Suspect]
     Active Substance: ALENDRONATE SODIUM\CHOLECALCIFEROL
     Indication: OSTEOPOROSIS
     Dosage: 70 MG + 2800 IU WEEKLY
     Route: 048

REACTIONS (6)
  - Atypical femur fracture [Unknown]
  - Pain [Unknown]
  - Drug ineffective [Unknown]
  - Femur fracture [Unknown]
  - Arthralgia [Unknown]
  - Oedema peripheral [Unknown]
